FAERS Safety Report 17976622 (Version 1)
Quarter: 2020Q3

REPORT INFORMATION
  Report Type: Report from Study
  Country: CA (occurrence: CA)
  Receive Date: 20200703
  Receipt Date: 20200703
  Transmission Date: 20201103
  Serious: Yes (Other)
  Sender: FDA-Public Use
  Company Number: CA-BIOGEN-2020BI00892935

PATIENT
  Sex: Female

DRUGS (4)
  1. TECFIDERA [Suspect]
     Active Substance: DIMETHYL FUMARATE
     Dosage: IN PM
     Route: 065
  2. TECFIDERA [Suspect]
     Active Substance: DIMETHYL FUMARATE
     Indication: MULTIPLE SCLEROSIS
     Dosage: IN AM
     Route: 065
     Dates: start: 20200609
  3. LANTUS [Concomitant]
     Active Substance: INSULIN GLARGINE
     Indication: TYPE 1 DIABETES MELLITUS
     Route: 065
  4. NOVORAPID [Concomitant]
     Active Substance: INSULIN ASPART
     Indication: TYPE 1 DIABETES MELLITUS
     Route: 065

REACTIONS (9)
  - Blood glucose increased [Unknown]
  - Underdose [Unknown]
  - Deafness [Unknown]
  - Vertigo [Unknown]
  - Haematocrit decreased [Unknown]
  - Glycosylated haemoglobin increased [Unknown]
  - Hyperaesthesia [Unknown]
  - Paraesthesia [Unknown]
  - Diplopia [Unknown]
